FAERS Safety Report 16447149 (Version 2)
Quarter: 2019Q2

REPORT INFORMATION
  Report Type: Spontaneous
  Country: AU (occurrence: AU)
  Receive Date: 20190618
  Receipt Date: 20190621
  Transmission Date: 20190711
  Serious: Yes (Hospitalization)
  Sender: FDA-Public Use
  Company Number: AU-ALLERGAN-1925199US

PATIENT
  Sex: Female

DRUGS (1)
  1. BOTOX [Suspect]
     Active Substance: ONABOTULINUMTOXINA
     Indication: SKIN WRINKLING
     Dosage: UNK, SINGLE
     Route: 065

REACTIONS (11)
  - Paraesthesia [Unknown]
  - Visual impairment [Unknown]
  - Swollen tongue [Unknown]
  - Hypersensitivity [Unknown]
  - Dizziness [Unknown]
  - Psychological trauma [Unknown]
  - Headache [Unknown]
  - Lip swelling [Unknown]
  - Hyperhidrosis [Unknown]
  - Hypoacusis [Unknown]
  - Feeling abnormal [Unknown]
